FAERS Safety Report 13528036 (Version 1)
Quarter: 2017Q2

REPORT INFORMATION
  Report Type: Spontaneous
  Country: US (occurrence: US)
  Receive Date: 20170509
  Receipt Date: 20170509
  Transmission Date: 20170830
  Serious: Yes (Hospitalization)
  Sender: FDA-Public Use
  Company Number: US-INGENUS PHARMACEUTICALS NJ, LLC-ING201705-000227

PATIENT
  Age: 77 Year
  Sex: Female

DRUGS (5)
  1. CARISOPRODOL AND ASPIRIN [Suspect]
     Active Substance: ASPIRIN\CARISOPRODOL
     Indication: AORTIC VALVE REPLACEMENT
  2. CARISOPRODOL AND ASPIRIN [Suspect]
     Active Substance: ASPIRIN\CARISOPRODOL
     Indication: CORONARY ARTERY BYPASS
  3. RIVAROXABAN [Concomitant]
     Active Substance: RIVAROXABAN
  4. CARISOPRODOL AND ASPIRIN [Suspect]
     Active Substance: ASPIRIN\CARISOPRODOL
     Indication: CEREBROVASCULAR ACCIDENT
  5. HEPARIN [Suspect]
     Active Substance: HEPARIN SODIUM
     Indication: ATRIAL FIBRILLATION
     Route: 042

REACTIONS (3)
  - Neuropathy peripheral [Recovered/Resolved]
  - Retroperitoneal haematoma [Recovered/Resolved]
  - Retroperitoneal haemorrhage [Recovered/Resolved]
